FAERS Safety Report 8198815 (Version 2)
Quarter: 2013Q1

REPORT INFORMATION
  Report Type: Spontaneous
  Country: US (occurrence: US)
  Receive Date: 20111025
  Receipt Date: 20130125
  Transmission Date: 20140127
  Serious: Yes (Other)
  Sender: FDA-Public Use
  Company Number: US-ELI_LILLY_AND_COMPANY-US201110004543

PATIENT
  Sex: Male

DRUGS (8)
  1. BYETTA [Suspect]
     Indication: PRODUCT USED FOR UNKNOWN INDICATION
     Dosage: 5 UG, BID
     Route: 058
  2. BYETTA [Suspect]
     Dosage: 10 UG, BID
     Route: 058
  3. DIOVAN [Concomitant]
  4. LEVEMIR [Concomitant]
  5. NOVOLIN [Concomitant]
  6. ASPIRIN [Concomitant]
  7. METFORMIN [Concomitant]
  8. GLIPIZIDE [Concomitant]

REACTIONS (3)
  - Biliary dyskinesia [Unknown]
  - Pancreatitis [Unknown]
  - Pancreatitis relapsing [Unknown]
